FAERS Safety Report 4999353-5 (Version None)
Quarter: 2006Q2

REPORT INFORMATION
  Report Type: 
  Country: None (occurrence: None)
  Receive Date: 20060509
  Receipt Date: 20060509
  Transmission Date: 20061013
  Serious: Yes (Hospitalization)
  Sender: FDA-Public Use
  Company Number: None

PATIENT
  Age: 44 Year
  Sex: Male

DRUGS (9)
  1. PAROXETINE [Suspect]
     Indication: DEPRESSION
     Dosage: 40MG  PO  QD  (DURATION: SHORT TIME)
     Route: 048
  2. ASPIRIN [Concomitant]
  3. PREDNISONE TAB [Concomitant]
  4. DILTIAZEM [Concomitant]
  5. OXYCODONE AND ACETAMINOPHEN [Concomitant]
  6. LEVOFLOXACIN [Concomitant]
  7. METRONIDAZOLE [Concomitant]
  8. FENTANYL [Concomitant]
  9. GABAPENTIN [Concomitant]

REACTIONS (2)
  - DELIRIUM [None]
  - MENTAL STATUS CHANGES [None]
